FAERS Safety Report 5694836-7 (Version None)
Quarter: 2008Q2

REPORT INFORMATION
  Report Type: 
  Country: None (occurrence: None)
  Receive Date: 20080404
  Receipt Date: 20080326
  Transmission Date: 20081010
  Serious: Yes (Life-Threatening)
  Sender: FDA-Public Use
  Company Number: FR-AVENTIS-200811111FR

PATIENT
  Age: 54 Year
  Sex: Male

DRUGS (10)
  1. RIFADIN [Suspect]
     Dosage: DOSE: 600 TO 900
     Route: 048
     Dates: start: 20071215, end: 20071229
  2. COLIMYCINE                         /00013202/ [Suspect]
     Dosage: DOSE: 6 TO 9
     Route: 042
     Dates: start: 20071212, end: 20071229
  3. FORTUM                             /00559702/ [Concomitant]
     Route: 042
     Dates: start: 20070101, end: 20071201
  4. AMIKLIN                            /00391001/ [Concomitant]
     Route: 042
     Dates: start: 20070101, end: 20071201
  5. DITROPAN [Concomitant]
     Indication: DRUG USE FOR UNKNOWN INDICATION
     Route: 048
     Dates: start: 20071128
  6. LOVENOX [Concomitant]
     Indication: DRUG USE FOR UNKNOWN INDICATION
     Route: 058
     Dates: start: 20071128
  7. METOCLOPRAMIDE HCL [Concomitant]
     Indication: DRUG USE FOR UNKNOWN INDICATION
     Dates: start: 20071216
  8. TRIFLUCAN [Concomitant]
     Indication: DRUG USE FOR UNKNOWN INDICATION
     Dates: start: 20071226
  9. SERUM PHYSIOLOGICAL [Concomitant]
     Indication: DRUG USE FOR UNKNOWN INDICATION
     Dates: start: 20071214, end: 20071227
  10. SERUM PHYSIOLOGICAL [Concomitant]
     Dates: start: 20071228

REACTIONS (2)
  - DEPRESSED LEVEL OF CONSCIOUSNESS [None]
  - HYPONATRAEMIA [None]
